FAERS Safety Report 9236867 (Version 1)
Quarter: 2013Q2

REPORT INFORMATION
  Report Type: Spontaneous
  Country: US (occurrence: US)
  Receive Date: 20130417
  Receipt Date: 20130417
  Transmission Date: 20140414
  Serious: Yes (Death, Hospitalization)
  Sender: FDA-Public Use
  Company Number: US200906004681

PATIENT
  Age: 77 Year
  Sex: Female
  Weight: 68.03 kg

DRUGS (18)
  1. BYETTA [Suspect]
     Dates: start: 20051212, end: 20060818
  2. EXENATIDE UNK STRENGTH PEN, DISPOSABLE DEVICE [Concomitant]
  3. AMARYL [Concomitant]
  4. AVANDAMET [Concomitant]
  5. AVAPRO [Concomitant]
  6. FUROSEMIDE [Concomitant]
  7. TOPROL [Concomitant]
  8. CLONIDINE [Concomitant]
  9. DIGITEK [Concomitant]
  10. KLOR-CON [Concomitant]
  11. ASPIRIN [Concomitant]
  12. OCUVITE [Concomitant]
  13. TYLENOL [Concomitant]
  14. BENADRYL [Concomitant]
  15. ACTOS [Concomitant]
  16. FENTANYL [Concomitant]
  17. LEVEMIR [Concomitant]
  18. PERCOCET [Concomitant]

REACTIONS (5)
  - Pancreatic carcinoma metastatic [Fatal]
  - Duodenal ulcer [Unknown]
  - Pyrexia [Unknown]
  - Renal injury [Unknown]
  - Off label use [Recovered/Resolved]
